FAERS Safety Report 18845775 (Version 1)
Quarter: 2021Q1

REPORT INFORMATION
  Report Type: Spontaneous
  Country: FR (occurrence: FR)
  Receive Date: 20210204
  Receipt Date: 20210204
  Transmission Date: 20210419
  Serious: Yes (Other)
  Sender: FDA-Public Use
  Company Number: FR-INFO-001170

PATIENT
  Age: 7 Decade
  Sex: Male

DRUGS (4)
  1. ALFENTANIL. [Concomitant]
     Active Substance: ALFENTANIL
     Indication: SEDATION
     Route: 065
  2. CLONIDINE. [Concomitant]
     Active Substance: CLONIDINE
     Indication: LOCAL ANAESTHESIA
     Dosage: AS ROPIVACAINE ADJUVANT 7.5?G/ML ????
     Route: 031
  3. MIDAZOLAM. [Concomitant]
     Active Substance: MIDAZOLAM
     Indication: SEDATION
     Route: 065
  4. ROPIVACAINE 1% [Suspect]
     Active Substance: ROPIVACAINE HYDROCHLORIDE
     Indication: LOCAL ANAESTHESIA
     Dosage: 2 INJECTIONS (8ML+2ML) AT A RATE OF APPROXIMATELY 1 ML/2 S ; IN TOTAL??????
     Route: 031

REACTIONS (2)
  - Amaurosis [Recovered/Resolved]
  - Off label use [Unknown]
